FAERS Safety Report 12861968 (Version 1)
Quarter: 2016Q4

REPORT INFORMATION
  Report Type: Spontaneous
  Country: AU (occurrence: AU)
  Receive Date: 20161019
  Receipt Date: 20161019
  Transmission Date: 20170207
  Serious: Yes (Other)
  Sender: FDA-Public Use
  Company Number: PHHY2016AU141651

PATIENT
  Age: 27 Year
  Sex: Male

DRUGS (3)
  1. DEXAMETHASONE. [Suspect]
     Active Substance: DEXAMETHASONE
     Indication: PRODUCT USED FOR UNKNOWN INDICATION
     Route: 065
  2. GLIVEC [Suspect]
     Active Substance: IMATINIB MESYLATE
     Indication: CHRONIC MYELOID LEUKAEMIA
     Route: 065
  3. IMATINIB [Suspect]
     Active Substance: IMATINIB
     Indication: CHRONIC MYELOID LEUKAEMIA
     Route: 065

REACTIONS (33)
  - Chronic myeloid leukaemia recurrent [Unknown]
  - Procedural complication [Unknown]
  - Emotional distress [Unknown]
  - Restlessness [Unknown]
  - Visual impairment [Unknown]
  - Vision blurred [Unknown]
  - Mucosal inflammation [Unknown]
  - Weight decreased [Unknown]
  - Febrile neutropenia [Unknown]
  - Asthenia [Unknown]
  - Communication disorder [Unknown]
  - Frustration tolerance decreased [Unknown]
  - Shock [Unknown]
  - Disturbance in attention [Unknown]
  - Diet refusal [Unknown]
  - Ocular discomfort [Unknown]
  - Eating disorder [Unknown]
  - Somnolence [Unknown]
  - Fatigue [Unknown]
  - Skin exfoliation [Unknown]
  - Graft versus host disease in eye [Unknown]
  - Hair growth abnormal [Unknown]
  - Graft versus host disease in liver [Unknown]
  - Graft versus host disease in skin [Unknown]
  - Graft versus host disease [Unknown]
  - Panic disorder [Unknown]
  - Claustrophobia [Unknown]
  - Altered state of consciousness [Unknown]
  - Depression [Not Recovered/Not Resolved]
  - Dry skin [Unknown]
  - Agitation [Unknown]
  - Anxiety [Unknown]
  - Dry eye [Unknown]
